FAERS Safety Report 19868401 (Version 5)
Quarter: 2024Q4

REPORT INFORMATION
  Report Type: Report from Study
  Country: GB (occurrence: GB)
  Receive Date: 20210921
  Receipt Date: 20241127
  Transmission Date: 20250115
  Serious: Yes (Hospitalization, Other)
  Sender: SANOFI AVENTIS
  Company Number: GB-SA-2019SA170318

PATIENT
  Age: 81 Year
  Sex: Male
  Weight: 97.7 kg

DRUGS (9)
  1. DUPILUMAB [Suspect]
     Active Substance: DUPILUMAB
     Indication: Dermatitis atopic
     Dosage: 300 MG, Q4W
     Route: 058
     Dates: start: 201902
  2. NEBIVOLOL [Suspect]
     Active Substance: NEBIVOLOL
  3. PARAFFIN [Concomitant]
     Active Substance: PARAFFIN
     Dosage: UNK UNK, BID
     Route: 061
  4. BETAMETHASONE VALERATE\FUSIDIC ACID [Concomitant]
     Active Substance: BETAMETHASONE VALERATE\FUSIDIC ACID
     Dosage: UNK UNK, BID
     Route: 061
  5. LANSOPRAZOLE [Concomitant]
     Active Substance: LANSOPRAZOLE
     Dosage: 30 MG, QD
     Route: 048
  6. LEVOTHYROXINE [Concomitant]
     Active Substance: LEVOTHYROXINE
     Dosage: 100 UG, QD
     Route: 048
  7. LEVOTHYROXINE [Concomitant]
     Active Substance: LEVOTHYROXINE
     Dosage: 25 UG, QD
     Route: 048
  8. HYALURONATE SODIUM [Concomitant]
     Active Substance: HYALURONATE SODIUM
     Dosage: 0.15% WITH TREHALOSE 3% EYE DROPS: 1 DROP; 0.2 %: 1 DROP
     Route: 047
  9. TICAGRELOR [Concomitant]
     Active Substance: TICAGRELOR
     Dosage: 90 MG, BID
     Route: 048

REACTIONS (23)
  - Myocardial infarction [Unknown]
  - Loss of consciousness [Unknown]
  - Malaise [Unknown]
  - Bradycardia [Unknown]
  - Cold sweat [Unknown]
  - Chest pain [Unknown]
  - Troponin increased [Unknown]
  - Dizziness [Unknown]
  - Syncope [Unknown]
  - Suicidal ideation [Unknown]
  - Oedema peripheral [Unknown]
  - Constipation [Unknown]
  - Back pain [Unknown]
  - Dry eye [Not Recovered/Not Resolved]
  - Hypotension [Unknown]
  - Feeling abnormal [Unknown]
  - Blood uric acid increased [Unknown]
  - Nausea [Unknown]
  - Eye disorder [Unknown]
  - Rash macular [Not Recovered/Not Resolved]
  - Pruritus [Unknown]
  - Inappropriate schedule of product administration [Unknown]
  - Off label use [Unknown]

NARRATIVE: CASE EVENT DATE: 20190101
